FAERS Safety Report 4776412-3 (Version None)
Quarter: 2005Q3

REPORT INFORMATION
  Report Type: 
  Country: None (occurrence: None)
  Receive Date: 20050921
  Receipt Date: 20050908
  Transmission Date: 20060218
  Serious: Yes (Other)
  Sender: FDA-Public Use
  Company Number: HQWYE308908SEP05

PATIENT
  Age: 51 Year
  Sex: Female

DRUGS (3)
  1. INDERAL [Suspect]
     Indication: PALPITATIONS
     Dosage: 10 MG 2X PER 1 DAY, ORAL
     Route: 048
     Dates: start: 20040101
  2. ALCOHOL (ETHANOL,) [Suspect]
     Dosage: 10 UNIT 1X PER 1 DAY
  3. PRAVASTATIN [Suspect]
     Dosage: ORAL
     Route: 048
     Dates: start: 20040101

REACTIONS (1)
  - HYPOGLYCAEMIA [None]
